FAERS Safety Report 19766800 (Version 2)
Quarter: 2021Q3

REPORT INFORMATION
  Report Type: Spontaneous
  Country: IT (occurrence: IT)
  Receive Date: 20210830
  Receipt Date: 20210907
  Transmission Date: 20211014
  Serious: Yes (Other)
  Sender: FDA-Public Use
  Company Number: IT-MYLANLABS-2021M1055774

PATIENT
  Age: 59 Year
  Sex: Female

DRUGS (5)
  1. NIFEDIPINE. [Suspect]
     Active Substance: NIFEDIPINE
     Indication: HYPERTENSION
  2. DICLOREUM                          /00372301/ [Suspect]
     Active Substance: DICLOFENAC SODIUM
     Indication: BACK PAIN
     Dosage: 100 MILLIGRAM, QD
     Route: 048
  3. MUSCORIL [Suspect]
     Active Substance: THIOCOLCHICOSIDE
     Indication: BACK PAIN
  4. XANAX [Concomitant]
     Active Substance: ALPRAZOLAM
  5. EUTIROX [Concomitant]
     Active Substance: LEVOTHYROXINE SODIUM
     Indication: THYROIDECTOMY

REACTIONS (3)
  - Macroglossia [Unknown]
  - Erythema [Unknown]
  - Oedema peripheral [Unknown]

NARRATIVE: CASE EVENT DATE: 20210101
